FAERS Safety Report 5067648-5 (Version None)
Quarter: 2006Q3

REPORT INFORMATION
  Report Type: 
  Country: None (occurrence: None)
  Receive Date: 20060731
  Receipt Date: 20060720
  Transmission Date: 20061208
  Serious: Yes (Other)
  Sender: FDA-Public Use
  Company Number: 2006089168

PATIENT
  Age: 42 Year
  Sex: Male

DRUGS (1)
  1. LISTERINE ANTISEPTIC MOUTHWASH (MENTHOL, METHYL SALICYLATE, EUCALYPTOL [Suspect]
     Indication: ALCOHOLISM
     Dosage: 6 OZ ONCE A DAY, ORAL
     Route: 048
     Dates: start: 20060718

REACTIONS (4)
  - HAEMATEMESIS [None]
  - INCORRECT ROUTE OF DRUG ADMINISTRATION [None]
  - INTENTIONAL DRUG MISUSE [None]
  - OCULAR HYPERAEMIA [None]
